FAERS Safety Report 17767665 (Version 3)
Quarter: 2020Q3

REPORT INFORMATION
  Report Type: Report from Study
  Country: US (occurrence: US)
  Receive Date: 20200511
  Receipt Date: 20200922
  Transmission Date: 20201102
  Serious: No
  Sender: FDA-Public Use
  Company Number: NVSC2020US127403

PATIENT
  Sex: Male

DRUGS (1)
  1. COSENTYX [Suspect]
     Active Substance: SECUKINUMAB
     Indication: PSORIATIC ARTHROPATHY
     Dosage: UNK (BENEATH THE SKIN, USUALLY VIA INJECTION)
     Route: 058

REACTIONS (4)
  - Pain [Unknown]
  - Product dose omission issue [Unknown]
  - Product supply issue [Unknown]
  - Procedural pain [Unknown]
